FAERS Safety Report 7959077-9 (Version None)
Quarter: 2011Q4

REPORT INFORMATION
  Report Type: 
  Country: None (occurrence: None)
  Receive Date: 20111206
  Receipt Date: 20111206
  Transmission Date: 20120403
  Serious: No
  Sender: FDA-Public Use
  Company Number: None

PATIENT

DRUGS (1)
  1. REQUIP [Suspect]

REACTIONS (4)
  - GAMBLING [None]
  - FAMILY STRESS [None]
  - ECONOMIC PROBLEM [None]
  - LIBIDO INCREASED [None]
